FAERS Safety Report 13501492 (Version 1)
Quarter: 2017Q2

REPORT INFORMATION
  Report Type: Spontaneous
  Country: US (occurrence: US)
  Receive Date: 20170501
  Receipt Date: 20170501
  Transmission Date: 20170830
  Serious: No
  Sender: FDA-Public Use
  Company Number: US-ROCHE-1897778

PATIENT
  Age: 54 Year
  Sex: Female

DRUGS (1)
  1. ESBRIET [Suspect]
     Active Substance: PIRFENIDONE
     Indication: IDIOPATHIC PULMONARY FIBROSIS
     Route: 048
     Dates: start: 20170127

REACTIONS (8)
  - Pruritus [Unknown]
  - Nausea [Unknown]
  - Mass [Unknown]
  - Dyspepsia [Unknown]
  - Gastrooesophageal reflux disease [Unknown]
  - Blood glucose increased [Unknown]
  - Cerebral disorder [Unknown]
  - Abdominal distension [Unknown]

NARRATIVE: CASE EVENT DATE: 20170213
